FAERS Safety Report 6335975-7 (Version None)
Quarter: 2009Q3

REPORT INFORMATION
  Report Type: 
  Country: None (occurrence: None)
  Receive Date: 20090901
  Receipt Date: 20090803
  Transmission Date: 20100115
  Serious: Yes (Hospitalization)
  Sender: FDA-Public Use
  Company Number: NL-EISAI INC.-E3810-03091-SPO-NL

PATIENT
  Sex: Female

DRUGS (6)
  1. PARIET (RABEPRAZOLE) [Suspect]
     Route: 048
     Dates: start: 20060101, end: 20090202
  2. IMURAN [Concomitant]
     Dates: start: 20060101, end: 20090101
  3. MAGNESIUMGLUCONAAT DRANK [Concomitant]
     Dates: start: 20060101, end: 20090101
  4. KALIUMCHLORIDE DRANK [Concomitant]
     Dates: start: 20060101, end: 20090101
  5. CALCICHEW KAUWTABLET [Concomitant]
     Dosage: 2 DF
     Dates: start: 20060101, end: 20090101
  6. IMODIUM [Concomitant]
     Dates: start: 20060101

REACTIONS (4)
  - HYPOCALCAEMIA [None]
  - HYPOKALAEMIA [None]
  - HYPOMAGNESAEMIA [None]
  - HYPOPARATHYROIDISM [None]
